FAERS Safety Report 8897293 (Version 1)
Quarter: 2012Q4

REPORT INFORMATION
  Report Type: 
  Country: US (occurrence: US)
  Receive Date: 20121108
  Receipt Date: 20121108
  Transmission Date: 20130627
  Serious: No
  Sender: FDA-Public Use
  Company Number: US-AMGEN-USASP2012029005

PATIENT
  Sex: Female

DRUGS (16)
  1. ENBREL [Suspect]
     Indication: PRODUCT USED FOR UNKNOWN INDICATION
     Dosage: 25 mg, qwk
     Route: 058
  2. POTASSIUM [Concomitant]
  3. PREMARIN [Concomitant]
  4. LISINOPRIL [Concomitant]
  5. METHOTREXATE [Concomitant]
  6. FOLIC ACID [Concomitant]
  7. PLAQUENIL                          /00072603/ [Concomitant]
     Dosage: 200 mg, UNK
  8. CELEBREX [Concomitant]
     Dosage: 100 mg, UNK
  9. ATENOLOL [Concomitant]
     Dosage: 50 mg, UNK
  10. LISINOPRIL/HCTZ [Concomitant]
  11. KLOR-CON [Concomitant]
     Dosage: 20 mEq, UNK
  12. CALCIUM 500+D [Concomitant]
  13. MULTIVITAMIN                       /00097801/ [Concomitant]
  14. TYLENOL ARTHRITIS [Concomitant]
     Dosage: 650 mg, UNK
  15. ASPIRIN [Concomitant]
     Dosage: 81 mg, UNK
  16. SLOW-MAG [Concomitant]

REACTIONS (1)
  - Sinusitis [Not Recovered/Not Resolved]
